FAERS Safety Report 8158073-9 (Version None)
Quarter: 2012Q1

REPORT INFORMATION
  Report Type: 
  Country: None (occurrence: None)
  Receive Date: 20120222
  Receipt Date: 20120220
  Transmission Date: 20120608
  Serious: Yes (Life-Threatening)
  Sender: FDA-Public Use
  Company Number: IT-MERCK-1202ITA00041

PATIENT
  Age: 65 Year
  Sex: Male

DRUGS (6)
  1. LANSOPRAZOLE [Concomitant]
     Route: 065
  2. REPAGLINIDE [Concomitant]
     Route: 065
  3. VYTORIN [Suspect]
     Indication: HYPERCHOLESTEROLAEMIA
     Route: 048
     Dates: start: 20090806
  4. FERROUS SULFATE [Concomitant]
     Route: 065
  5. RAMIPRIL [Concomitant]
     Route: 065
  6. TICLOPIDINE HYDROCHLORIDE [Concomitant]
     Route: 065

REACTIONS (1)
  - COLON CANCER [None]
